FAERS Safety Report 5742517-3 (Version None)
Quarter: 2008Q2

REPORT INFORMATION
  Report Type: 
  Country: None (occurrence: None)
  Receive Date: 20080519
  Receipt Date: 20080516
  Transmission Date: 20081010
  Serious: Yes (Other)
  Sender: FDA-Public Use
  Company Number: A0724459A

PATIENT
  Sex: Female
  Weight: 79.8 kg

DRUGS (1)
  1. ALLI [Suspect]
     Route: 048
     Dates: start: 20080329

REACTIONS (4)
  - DRUG INEFFECTIVE [None]
  - HYPOMETABOLISM [None]
  - JOINT DISLOCATION [None]
  - RECTAL DISCHARGE [None]
